FAERS Safety Report 13186249 (Version 2)
Quarter: 2017Q2

REPORT INFORMATION
  Report Type: Report from Study
  Country: US (occurrence: US)
  Receive Date: 20170204
  Receipt Date: 20170414
  Transmission Date: 20170830
  Serious: Yes (Hospitalization, Other)
  Sender: FDA-Public Use
  Company Number: US-AMGEN-USASP2017014851

PATIENT
  Age: 55 Year
  Sex: Female

DRUGS (5)
  1. NEUPOGEN [Suspect]
     Active Substance: FILGRASTIM
     Dosage: 0.06 UNK, UNK
     Route: 065
  2. NEUPOGEN [Suspect]
     Active Substance: FILGRASTIM
     Indication: IDIOPATHIC NEUTROPENIA
     Dosage: UNK
     Route: 065
     Dates: start: 2006
  3. NEUPOGEN [Suspect]
     Active Substance: FILGRASTIM
     Dosage: UNK, 3 TIMES/WK (THREE TIMES WEEKLY FOR A COUPLE WEEKS)
     Route: 058
     Dates: start: 2016
  4. NEUPOGEN [Suspect]
     Active Substance: FILGRASTIM
     Dosage: UNK, QWK (ONCE WEEKLY FOR A COUPLE OF WEEKS)
     Route: 065
  5. NEUPOGEN [Suspect]
     Active Substance: FILGRASTIM
     Dosage: UNK, 2 TIMES/WK (TWICE WEEKLY FOR A COUPLE WEEKS)
     Route: 065
     Dates: start: 201703

REACTIONS (16)
  - Neutrophil count decreased [Unknown]
  - Headache [Unknown]
  - Palpitations [Unknown]
  - Fatigue [Not Recovered/Not Resolved]
  - Chills [Not Recovered/Not Resolved]
  - Tachycardia [Unknown]
  - Tinnitus [Unknown]
  - Pyrexia [Not Recovered/Not Resolved]
  - Unevaluable event [Unknown]
  - Inappropriate schedule of drug administration [Unknown]
  - Febrile neutropenia [Recovered/Resolved]
  - Vomiting [Not Recovered/Not Resolved]
  - Heart rate irregular [Not Recovered/Not Resolved]
  - Paraesthesia oral [Unknown]
  - Bone pain [Not Recovered/Not Resolved]
  - Chest pain [Recovering/Resolving]

NARRATIVE: CASE EVENT DATE: 2006
